FAERS Safety Report 8297319-3 (Version None)
Quarter: 2012Q2

REPORT INFORMATION
  Report Type: 
  Country: None (occurrence: None)
  Receive Date: 20120417
  Receipt Date: 20120406
  Transmission Date: 20120825
  Serious: Yes (Hospitalization)
  Sender: FDA-Public Use
  Company Number: B0420409A

PATIENT
  Age: 67 Year
  Sex: Female

DRUGS (3)
  1. CHLORPROMAZINE HCL [Concomitant]
  2. PAXIL [Suspect]
     Indication: DEPRESSION
     Dosage: 20 MG / PER DAY / ORAL
     Route: 048
  3. PROMETHAZINE HCL [Concomitant]

REACTIONS (7)
  - DREAMY STATE [None]
  - HALLUCINATION [None]
  - NIGHTMARE [None]
  - FALL [None]
  - DRUG ERUPTION [None]
  - DELUSION [None]
  - RESTLESSNESS [None]
